FAERS Safety Report 20784176 (Version 1)
Quarter: 2022Q2

REPORT INFORMATION
  Report Type: Spontaneous
  Country: DE (occurrence: DE)
  Receive Date: 20220504
  Receipt Date: 20220504
  Transmission Date: 20220721
  Serious: Yes (Other)
  Sender: FDA-Public Use
  Company Number: DE-NOVARTISPH-NVSC2022DE025573

PATIENT
  Sex: Male

DRUGS (2)
  1. BEOVU [Suspect]
     Active Substance: BROLUCIZUMAB-DBLL
     Indication: Neovascular age-related macular degeneration
     Dosage: UNK
     Route: 065
     Dates: start: 20211130
  2. BEOVU [Suspect]
     Active Substance: BROLUCIZUMAB-DBLL
     Dosage: UNK
     Route: 065
     Dates: start: 20220104

REACTIONS (4)
  - Keratic precipitates [Recovered/Resolved]
  - Anterior chamber cell [Recovered/Resolved]
  - Vitreal cells [Recovered/Resolved]
  - Vitreous opacities [Recovered/Resolved]

NARRATIVE: CASE EVENT DATE: 20220106
